FAERS Safety Report 7746384-8 (Version None)
Quarter: 2011Q3

REPORT INFORMATION
  Report Type: 
  Country: None (occurrence: None)
  Receive Date: 20110913
  Receipt Date: 20110913
  Transmission Date: 20111222
  Serious: Yes (Hospitalization, Other)
  Sender: FDA-Public Use
  Company Number: None

PATIENT
  Sex: Male
  Weight: 23.586 kg

DRUGS (1)
  1. METRONIDAZOLE [Suspect]
     Indication: GASTROINTESTINAL FUNGAL INFECTION
     Dosage: 5 ML
     Route: 048
     Dates: start: 20110826, end: 20110904

REACTIONS (5)
  - GRAND MAL CONVULSION [None]
  - VOMITING [None]
  - OBSTRUCTIVE AIRWAYS DISORDER [None]
  - LOSS OF CONSCIOUSNESS [None]
  - CYANOSIS [None]
